FAERS Safety Report 7632186-X (Version None)
Quarter: 2011Q3

REPORT INFORMATION
  Report Type: 
  Country: None (occurrence: None)
  Receive Date: 20110725
  Receipt Date: 20110531
  Transmission Date: 20111222
  Serious: No
  Sender: FDA-Public Use
  Company Number: US-BRISTOL-MYERS SQUIBB COMPANY-15793557

PATIENT
  Age: 63 Year
  Sex: Male

DRUGS (2)
  1. MULTAQ [Suspect]
     Indication: ATRIAL FIBRILLATION
     Dosage: TAB,400UNITS BID;SC
     Route: 048
     Dates: start: 20101201
  2. COUMADIN [Suspect]

REACTIONS (1)
  - SINUS ARRHYTHMIA [None]
